FAERS Safety Report 18540683 (Version 1)
Quarter: 2020Q4

REPORT INFORMATION
  Report Type: Spontaneous
  Country: US (occurrence: US)
  Receive Date: 20201124
  Receipt Date: 20201124
  Transmission Date: 20210114
  Serious: Yes (Other)
  Sender: FDA-Public Use
  Company Number: US-FOUNDATIONCONSUMERHC-2020-US-023445

PATIENT
  Age: 30 Year
  Sex: Female
  Weight: 79.38 kg

DRUGS (3)
  1. PRENATAL VITAMINS [Concomitant]
     Active Substance: VITAMINS
     Dates: start: 201911
  2. CIPROFLOXACIN. [Suspect]
     Active Substance: CIPROFLOXACIN
     Dates: start: 20201112, end: 202011
  3. AFTERA [Suspect]
     Active Substance: LEVONORGESTREL
     Indication: CONTRACEPTION
     Dosage: 1.5MG X APPROXIMATELY 60 DOSES (MISUSE)
     Route: 048
     Dates: start: 2015, end: 202010

REACTIONS (9)
  - Product use in unapproved indication [Recovered/Resolved]
  - Abortion spontaneous [Unknown]
  - Post abortion haemorrhage [Not Recovered/Not Resolved]
  - Drug ineffective [Unknown]
  - Menorrhagia [Unknown]
  - Pregnancy after post coital contraception [Unknown]
  - Exposure during pregnancy [Recovered/Resolved]
  - Intentional product misuse [Recovered/Resolved]
  - Urinary tract infection [Unknown]

NARRATIVE: CASE EVENT DATE: 2015
